FAERS Safety Report 23101029 (Version 1)
Quarter: 2023Q4

REPORT INFORMATION
  Report Type: Spontaneous
  Country: US (occurrence: None)
  Receive Date: 20231021
  Receipt Date: 20231021
  Transmission Date: 20240110
  Serious: Yes (Hospitalization)
  Sender: FDA-Public Use
  Company Number: None

PATIENT
  Age: 36 Year
  Sex: Male
  Weight: 88 kg

DRUGS (1)
  1. SULFAMETHOXAZOLE AND TRIMETHOPRIM [Suspect]
     Active Substance: SULFAMETHOXAZOLE\TRIMETHOPRIM
     Dosage: OTHER QUANTITY : 800/160MG;?FREQUENCY : TWICE A DAY;?
     Dates: start: 20220817, end: 20220817

REACTIONS (4)
  - Anaphylactic reaction [None]
  - Hyperhidrosis [None]
  - Rash [None]
  - Angioedema [None]

NARRATIVE: CASE EVENT DATE: 20220817
